FAERS Safety Report 5873518-2 (Version None)
Quarter: 2008Q3

REPORT INFORMATION
  Report Type: 
  Country: None (occurrence: None)
  Receive Date: 20080908
  Receipt Date: 20080829
  Transmission Date: 20090109
  Serious: Yes (Hospitalization)
  Sender: FDA-Public Use
  Company Number: FR-BRISTOL-MYERS SQUIBB COMPANY-14323919

PATIENT
  Age: 61 Year
  Sex: Male

DRUGS (3)
  1. CETUXIMAB [Suspect]
     Indication: BILE DUCT CANCER
     Dosage: 500 MG/M2 (TOTAL DOSE OF 860 MG)
     Route: 042
     Dates: start: 20080707
  2. OXALIPLATIN [Suspect]
     Indication: BILE DUCT CANCER
     Dosage: 100MG/M2 (TOTAL DOSE OF 172 MG)
     Route: 042
     Dates: start: 20080708
  3. GEMCITABINE [Suspect]
     Indication: BILE DUCT CANCER
     Dosage: 1000 MG/M2 (TOTAL DOSE OF 1720 MG)
     Route: 042
     Dates: start: 20080707

REACTIONS (1)
  - NEUTROPENIA [None]
